FAERS Safety Report 8436705-5 (Version None)
Quarter: 2012Q2

REPORT INFORMATION
  Report Type: 
  Country: None (occurrence: None)
  Receive Date: 20120614
  Receipt Date: 20120604
  Transmission Date: 20120825
  Serious: Yes (Other)
  Sender: FDA-Public Use
  Company Number: ES-SANOFI-AVENTIS-2012SA042089

PATIENT

DRUGS (5)
  1. OXALIPLATIN [Suspect]
     Indication: RECTAL CANCER
     Dosage: 2 HOURS INFUSION ON DAYS 1, 8 AND 15
     Route: 042
  2. CAPECITABINE [Suspect]
     Indication: RECTAL CANCER
     Dosage: 5 DAYS PER WEEK
     Route: 065
  3. OXALIPLATIN [Suspect]
     Dosage: ON DAYS 1 TO 14 OF 21 DAY CYCLE
     Route: 042
  4. THERAPEUTIC RADIOPHARMACEUTICALS [Suspect]
     Indication: RECTAL CANCER
     Dosage: 47.5 GY
     Route: 065
  5. CAPECITABINE [Suspect]
     Dosage: DAY ONE OF 21 DAY CYCLE
     Route: 065

REACTIONS (1)
  - FAECAL INCONTINENCE [None]
